FAERS Safety Report 8087375-X (Version None)
Quarter: 2012Q1

REPORT INFORMATION
  Report Type: 
  Country: None (occurrence: None)
  Receive Date: 20120128
  Receipt Date: 20110503
  Transmission Date: 20120608
  Serious: No
  Sender: FDA-Public Use
  Company Number: US-ABBOTT-11P-163-0724334-00

PATIENT
  Sex: Female

DRUGS (5)
  1. COZAAR [Concomitant]
     Indication: BLOOD PRESSURE
  2. PENTASA [Concomitant]
     Indication: CROHN'S DISEASE
  3. PRILOSEC [Concomitant]
     Indication: PRODUCT USED FOR UNKNOWN INDICATION
  4. HUMIRA [Suspect]
     Indication: CROHN'S DISEASE
     Dates: start: 20100901, end: 20110501
  5. MULTI-VITAMIN [Concomitant]
     Indication: PRODUCT USED FOR UNKNOWN INDICATION

REACTIONS (3)
  - GINGIVAL PAIN [None]
  - CHEILITIS [None]
  - CHAPPED LIPS [None]
